FAERS Safety Report 21624331 (Version 1)
Quarter: 2022Q4

REPORT INFORMATION
  Report Type: Spontaneous
  Country: US (occurrence: US)
  Receive Date: 20221121
  Receipt Date: 20221121
  Transmission Date: 20230113
  Serious: Yes (Other)
  Sender: FDA-Public Use
  Company Number: US-BRACCO-2022US00551

PATIENT
  Age: 59 Year
  Sex: Male

DRUGS (10)
  1. LUMASON [Suspect]
     Active Substance: SULFUR HEXAFLUORIDE
     Indication: Echocardiogram
     Dosage: 2 ML
     Route: 042
     Dates: start: 20220215, end: 20220215
  2. LUMASON [Suspect]
     Active Substance: SULFUR HEXAFLUORIDE
     Indication: Echocardiogram
     Dosage: 2 ML
     Route: 042
     Dates: start: 20220215, end: 20220215
  3. LUMASON [Suspect]
     Active Substance: SULFUR HEXAFLUORIDE
     Indication: Echocardiogram
     Dosage: 2 ML
     Route: 042
     Dates: start: 20220215, end: 20220215
  4. LUMASON [Suspect]
     Active Substance: SULFUR HEXAFLUORIDE
     Indication: Echocardiogram
     Dosage: 1 ML
     Route: 042
     Dates: start: 20220215, end: 20220215
  5. LUMASON [Suspect]
     Active Substance: SULFUR HEXAFLUORIDE
     Indication: Echocardiogram
     Dosage: 1 ML
     Route: 042
     Dates: start: 20220215, end: 20220215
  6. LUMASON [Suspect]
     Active Substance: SULFUR HEXAFLUORIDE
     Indication: Echocardiogram
     Dosage: 1 ML
     Route: 042
     Dates: start: 20220215, end: 20220215
  7. LUMASON [Suspect]
     Active Substance: SULFUR HEXAFLUORIDE
     Indication: Echocardiogram
     Dosage: 1 ML
     Route: 042
     Dates: start: 20220215, end: 20220215
  8. LUMASON [Suspect]
     Active Substance: SULFUR HEXAFLUORIDE
     Indication: Echocardiogram
     Dosage: 1 ML
     Route: 042
     Dates: start: 20220215, end: 20220215
  9. LUMASON [Suspect]
     Active Substance: SULFUR HEXAFLUORIDE
     Indication: Echocardiogram
     Dosage: 1 ML
     Route: 042
     Dates: start: 20220215, end: 20220215
  10. SODIUM CHLORIDE [Concomitant]
     Active Substance: SODIUM CHLORIDE
     Indication: Echocardiogram
     Dosage: 10 CC DILUTION OF LUMASON
     Dates: start: 20220215, end: 20220215

REACTIONS (5)
  - Blood pressure decreased [Recovering/Resolving]
  - Burning sensation [Recovering/Resolving]
  - Dizziness [Recovering/Resolving]
  - Retching [Recovering/Resolving]
  - Hyperhidrosis [Recovering/Resolving]

NARRATIVE: CASE EVENT DATE: 20220215
